FAERS Safety Report 18353191 (Version 3)
Quarter: 2021Q1

REPORT INFORMATION
  Report Type: Report from Study
  Country: US (occurrence: US)
  Receive Date: 20201007
  Receipt Date: 20210123
  Transmission Date: 20210419
  Serious: Yes (Other)
  Sender: FDA-Public Use
  Company Number: NVSC2020US264633

PATIENT
  Age: 61 Year
  Sex: Male

DRUGS (2)
  1. COSENTYX [Suspect]
     Active Substance: SECUKINUMAB
     Indication: PSORIATIC ARTHROPATHY
     Dosage: 300 MG, (ONE SINGLE DOSE)
     Route: 058
     Dates: start: 202008
  2. COSENTYX [Suspect]
     Active Substance: SECUKINUMAB
     Dosage: 300 MG, QW
     Route: 058
     Dates: start: 202009

REACTIONS (4)
  - Lymphadenopathy [Unknown]
  - Inappropriate schedule of product administration [Unknown]
  - Psoriatic arthropathy [Unknown]
  - Psoriasis [Unknown]

NARRATIVE: CASE EVENT DATE: 202008
